FAERS Safety Report 11528109 (Version 3)
Quarter: 2017Q3

REPORT INFORMATION
  Report Type: Report from Study
  Country: US (occurrence: US)
  Receive Date: 20150921
  Receipt Date: 20170727
  Transmission Date: 20171127
  Serious: Yes (Hospitalization)
  Sender: FDA-Public Use
  Company Number: US-009507513-1509USA008859

PATIENT
  Age: 50 Year
  Sex: Female
  Weight: 86.4 kg

DRUGS (12)
  1. GILDESS FE [Concomitant]
     Active Substance: ETHINYL ESTRADIOL\NORETHINDRONE
     Dosage: UNK
     Dates: start: 200401
  2. INFLIXIMAB [Suspect]
     Active Substance: INFLIXIMAB
     Indication: RHEUMATOID ARTHRITIS
     Dosage: 270 MG, ONCE, FORMULATION: POWDER FOR SOLUTION FOR INFUSION
     Route: 042
     Dates: start: 20141230, end: 20141230
  3. HYDROCHLOROTHIAZIDE. [Concomitant]
     Active Substance: HYDROCHLOROTHIAZIDE
     Dosage: UNK
     Dates: start: 2009
  4. ULTRACET [Concomitant]
     Active Substance: ACETAMINOPHEN\TRAMADOL HYDROCHLORIDE
     Dosage: UNK
     Dates: start: 20110105
  5. FOLIC ACID. [Concomitant]
     Active Substance: FOLIC ACID
     Dosage: UNK
     Dates: start: 20140412
  6. INFLIXIMAB [Suspect]
     Active Substance: INFLIXIMAB
     Dosage: 437 MG, ONCE, FORMULATION: POWDER FOR SOLUTION FOR INFUSION
     Route: 042
     Dates: start: 20150728, end: 20150728
  7. INFLIXIMAB [Suspect]
     Active Substance: INFLIXIMAB
     Dosage: 270 MG, ONCE, FORMULATION: POWDER FOR SOLUTION FOR INFUSION
     Route: 042
     Dates: start: 20150209, end: 20150209
  8. AMLODIPINE [Concomitant]
     Active Substance: AMLODIPINE BESYLATE
     Dosage: UNK
     Dates: start: 2009
  9. INFLIXIMAB [Suspect]
     Active Substance: INFLIXIMAB
     Dosage: 445 MG, ONCE, FORMULATION: POWDER FOR SOLUTION FOR INFUSION
     Route: 042
     Dates: start: 20150601, end: 20150601
  10. INFLIXIMAB [Suspect]
     Active Substance: INFLIXIMAB
     Dosage: 270 MG, ONCE, FORMULATION: POWDER FOR SOLUTION FOR INFUSION
     Route: 042
     Dates: start: 20150112, end: 20150112
  11. PRINIVIL [Suspect]
     Active Substance: LISINOPRIL
     Indication: HYPERTENSION
     Dosage: 10 MG, QD
     Route: 048
     Dates: start: 2010, end: 20150809
  12. INFLIXIMAB [Suspect]
     Active Substance: INFLIXIMAB
     Dosage: 445 MG, ONCE, FORMULATION: POWDER FOR SOLUTION FOR INFUSION
     Route: 042
     Dates: start: 20150421, end: 20150421

REACTIONS (4)
  - Enteritis [Recovered/Resolved]
  - Hypercholesterolaemia [Not Recovered/Not Resolved]
  - Hyperglycaemia [Not Recovered/Not Resolved]
  - Hepatic steatosis [Recovered/Resolved]

NARRATIVE: CASE EVENT DATE: 201012
